FAERS Safety Report 17809158 (Version 1)
Quarter: 2020Q2

REPORT INFORMATION
  Report Type: Spontaneous
  Country: AU (occurrence: AU)
  Receive Date: 20200520
  Receipt Date: 20200520
  Transmission Date: 20200714
  Serious: Yes (Hospitalization, Other)
  Sender: FDA-Public Use
  Company Number: AU-SA-2018SA139531

PATIENT
  Sex: Female

DRUGS (1)
  1. ALEMTUZUMAB [Suspect]
     Active Substance: ALEMTUZUMAB
     Indication: MULTIPLE SCLEROSIS
     Dosage: UNK UNK, UNK
     Route: 041
     Dates: start: 201804

REACTIONS (14)
  - CSF oligoclonal band present [Unknown]
  - Ataxia [Recovering/Resolving]
  - Lymphocyte count decreased [Unknown]
  - Bedridden [Recovering/Resolving]
  - Muscular weakness [Recovering/Resolving]
  - Condition aggravated [Recovering/Resolving]
  - General physical health deterioration [Recovering/Resolving]
  - Magnetic resonance imaging abnormal [Unknown]
  - Confusional state [Recovering/Resolving]
  - Somnolence [Unknown]
  - Multiple sclerosis [Recovering/Resolving]
  - Condition aggravated [Unknown]
  - Ophthalmoplegia [Recovering/Resolving]
  - Protein total increased [Unknown]

NARRATIVE: CASE EVENT DATE: 20180521
